FAERS Safety Report 10065330 (Version 2)
Quarter: 2014Q3

REPORT INFORMATION
  Report Type: Spontaneous
  Country: US (occurrence: None)
  Receive Date: 20140328
  Receipt Date: 20140701
  Transmission Date: 20150326
  Serious: No
  Sender: FDA-Public Use
  Company Number: 1000052202

PATIENT
  Age: 61 Year
  Sex: Female

DRUGS (5)
  1. MACROBID [Suspect]
     Active Substance: NITROFURANTOIN\NITROFURANTOIN MONOHYDRATE
     Indication: URINARY TRACT INFECTION
     Dates: start: 20131210
  2. CLONAZEPAM (CLONAZEPAM) (CLONAZEPAM) [Concomitant]
     Active Substance: CLONAZEPAM
  3. ADDERALL (OBETROL) (OBETROL) [Concomitant]
  4. LINZESS [Suspect]
     Active Substance: LINACLOTIDE
     Indication: IRRITABLE BOWEL SYNDROME
     Dosage: 260 MCG, 1 IN 1 D, ORAL
     Route: 048
     Dates: start: 20131210, end: 2014
  5. LINZESS [Suspect]
     Active Substance: LINACLOTIDE
     Indication: CONSTIPATION
     Dosage: 260 MCG, 1 IN 1 D, ORAL
     Route: 048
     Dates: start: 20131210, end: 2014

REACTIONS (9)
  - Fatigue [None]
  - Diarrhoea [None]
  - Gastrointestinal sounds abnormal [None]
  - Faecal incontinence [None]
  - Exercise tolerance decreased [None]
  - Abdominal distension [None]
  - Dyspnoea exertional [None]
  - Abdominal pain [None]
  - Faeces soft [None]

NARRATIVE: CASE EVENT DATE: 201312
